APPROVED DRUG PRODUCT: REBETOL
Active Ingredient: RIBAVIRIN
Strength: 200MG **Federal Register determination that product was not discontinued or withdrawn for safety or effectiveness reasons**
Dosage Form/Route: CAPSULE;ORAL
Application: N020903 | Product #002
Applicant: MERCK SHARP AND DOHME CORP
Approved: Jul 25, 2001 | RLD: Yes | RS: No | Type: DISCN